FAERS Safety Report 8082300-X (Version None)
Quarter: 2012Q1

REPORT INFORMATION
  Report Type: 
  Country: None (occurrence: None)
  Receive Date: 20120127
  Receipt Date: 20110215
  Transmission Date: 20120608
  Serious: No
  Sender: FDA-Public Use
  Company Number: US-ABBOTT-11P-163-0705547-00

PATIENT
  Age: 21 Year
  Sex: Female

DRUGS (2)
  1. HUMIRA [Suspect]
     Indication: PSORIATIC ARTHROPATHY
     Dates: start: 20101221
  2. BIRTH CONTROL [Concomitant]
     Indication: CONTRACEPTION

REACTIONS (2)
  - INJECTION SITE SWELLING [None]
  - INJECTION SITE PRURITUS [None]
